FAERS Safety Report 17394754 (Version 1)
Quarter: 2020Q1

REPORT INFORMATION
  Report Type: Report from Study
  Country: US (occurrence: US)
  Receive Date: 20200210
  Receipt Date: 20200210
  Transmission Date: 20200409
  Serious: Yes (Other)
  Sender: FDA-Public Use
  Company Number: US-ROCHE-2544598

PATIENT
  Sex: Female
  Weight: 81.27 kg

DRUGS (5)
  1. OCREVUS [Suspect]
     Active Substance: OCRELIZUMAB
     Indication: RELAPSING MULTIPLE SCLEROSIS
     Route: 042
     Dates: start: 20190122
  2. PREDNISONE. [Concomitant]
     Active Substance: PREDNISONE
  3. OCREVUS [Suspect]
     Active Substance: OCRELIZUMAB
     Route: 042
     Dates: start: 20190205
  4. PLEGRIDY [Concomitant]
     Active Substance: PEGINTERFERON BETA-1A
  5. OCREVUS [Suspect]
     Active Substance: OCRELIZUMAB
     Route: 042
     Dates: start: 20190722

REACTIONS (2)
  - Skin infection [Not Recovered/Not Resolved]
  - Eosinophil count increased [Unknown]
